FAERS Safety Report 6028538-4 (Version None)
Quarter: 2008Q4

REPORT INFORMATION
  Report Type: 
  Country: None (occurrence: None)
  Receive Date: 20081222
  Receipt Date: 20081028
  Transmission Date: 20090506
  Serious: No
  Sender: FDA-Public Use
  Company Number: US-WYE-H06592108

PATIENT
  Age: 74 Year
  Sex: Female
  Weight: 83.99 kg

DRUGS (3)
  1. PRISTIQ [Suspect]
     Dosage: 50 MG 1X PER 1 DAY, ORAL
     Route: 048
     Dates: start: 20081023
  2. LIPITOR [Concomitant]
  3. DEPAKOTE (VALPPROATE SEMISODIUM) [Concomitant]

REACTIONS (3)
  - APATHY [None]
  - FATIGUE [None]
  - SOMNOLENCE [None]
